FAERS Safety Report 9069622 (Version 1)
Quarter: 2013Q1

REPORT INFORMATION
  Report Type: Spontaneous
  Country: KR (occurrence: KR)
  Receive Date: 20130215
  Receipt Date: 20130215
  Transmission Date: 20140127
  Serious: Yes (Hospitalization)
  Sender: FDA-Public Use
  Company Number: PHHY2013KR014201

PATIENT
  Age: 55 Year
  Sex: Female

DRUGS (6)
  1. METFORMIN [Suspect]
     Dosage: 1000 MG, UNK
  2. AMLODIPINE [Concomitant]
     Dosage: 5 MG, UNK
  3. OLMESARTAN [Concomitant]
     Dosage: 20 MG, UNK
  4. VITAMIN B COMPLEX WITH VITAMIN C [Concomitant]
  5. FERRIC HYDROXIDE POLYMALTOSE COMPLEX [Concomitant]
     Dosage: 357 MG, UNK
  6. SITAGLIPTIN [Concomitant]
     Dosage: 50 MG, UNK

REACTIONS (6)
  - Encephalopathy [Recovering/Resolving]
  - Dysarthria [Recovering/Resolving]
  - Protrusion tongue [Recovering/Resolving]
  - Myoclonus [Recovering/Resolving]
  - Dyskinesia [Recovering/Resolving]
  - Malaise [Recovering/Resolving]
